FAERS Safety Report 10248743 (Version 1)
Quarter: 2014Q2

REPORT INFORMATION
  Report Type: Spontaneous
  Country: US (occurrence: None)
  Receive Date: 20140618
  Receipt Date: 20140618
  Transmission Date: 20141212
  Serious: No
  Sender: FDA-Public Use
  Company Number: None

PATIENT
  Age: 26 Year
  Sex: Male

DRUGS (1)
  1. HUMIRA [Suspect]
     Indication: PSORIASIS
     Dosage: EVERY 2 WEEKS.
     Route: 058
     Dates: start: 20130803

REACTIONS (4)
  - Urticaria [None]
  - Pharyngeal oedema [None]
  - Peripheral swelling [None]
  - Eye swelling [None]
